FAERS Safety Report 18797752 (Version 2)
Quarter: 2021Q1

REPORT INFORMATION
  Report Type: Spontaneous
  Country: BR (occurrence: BR)
  Receive Date: 20210128
  Receipt Date: 20210215
  Transmission Date: 20210419
  Serious: Yes (Disabling, Other)
  Sender: FDA-Public Use
  Company Number: BR-ASTRAZENECA-2021A014063

PATIENT
  Sex: Female

DRUGS (1)
  1. IRESSA [Suspect]
     Active Substance: GEFITINIB
     Dosage: 1 TABLET
     Route: 048
     Dates: start: 20210101, end: 20210121

REACTIONS (29)
  - Eye swelling [Not Recovered/Not Resolved]
  - Body temperature increased [Unknown]
  - Vomiting [Unknown]
  - Rash [Not Recovered/Not Resolved]
  - Haemorrhage [Not Recovered/Not Resolved]
  - Pulmonary pain [Not Recovered/Not Resolved]
  - Fatigue [Unknown]
  - Decreased appetite [Unknown]
  - Dry skin [Unknown]
  - Speech disorder [Not Recovered/Not Resolved]
  - Bone pain [Unknown]
  - Pleural effusion [Not Recovered/Not Resolved]
  - Vaginal disorder [Not Recovered/Not Resolved]
  - Diarrhoea [Not Recovered/Not Resolved]
  - Acne [Not Recovered/Not Resolved]
  - Epistaxis [Unknown]
  - Hypoaesthesia [Unknown]
  - Nausea [Unknown]
  - Gait inability [Not Recovered/Not Resolved]
  - Oral mucosal eruption [Not Recovered/Not Resolved]
  - Contusion [Not Recovered/Not Resolved]
  - Dry eye [Unknown]
  - Insomnia [Unknown]
  - Coagulopathy [Not Recovered/Not Resolved]
  - Eye discharge [Not Recovered/Not Resolved]
  - Inflammation [Not Recovered/Not Resolved]
  - Cystitis [Unknown]
  - Candida infection [Unknown]
  - Dermatitis acneiform [Unknown]

NARRATIVE: CASE EVENT DATE: 202101
